FAERS Safety Report 17142290 (Version 1)
Quarter: 2019Q4

REPORT INFORMATION
  Report Type: Spontaneous
  Country: US (occurrence: US)
  Receive Date: 20191211
  Receipt Date: 20191211
  Transmission Date: 20200122
  Serious: No
  Sender: FDA-Public Use
  Company Number: US-JUBILANT CADISTA PHARMACEUTICALS-2019JUB00145

PATIENT
  Sex: Male

DRUGS (1)
  1. METHYLPREDNISOLONE. [Suspect]
     Active Substance: METHYLPREDNISOLONE
     Indication: OSTEOARTHRITIS
     Dosage: UNK, AS DIRECTED
     Dates: end: 20190407

REACTIONS (1)
  - Therapeutic product effect incomplete [Recovered/Resolved]
